FAERS Safety Report 4390235-9 (Version None)
Quarter: 2004Q2

REPORT INFORMATION
  Report Type: 
  Country: None (occurrence: None)
  Receive Date: 20040630
  Receipt Date: 20040616
  Transmission Date: 20050107
  Serious: Yes (Hospitalization)
  Sender: FDA-Public Use
  Company Number: FR-JNJFOC-20040604073

PATIENT
  Age: 74 Year
  Sex: Female

DRUGS (10)
  1. TRAMADOL HCL [Suspect]
     Dosage: 2 DOSE(S), 1 IN 1 DAY, ORAL
     Route: 048
     Dates: end: 20040303
  2. ZYRTEC [Suspect]
     Dosage: 10 MG, 1 IN 1 DAY, ORAL
     Route: 048
     Dates: end: 20040304
  3. MIZOLLEN (MIZOLASTINE) TABLETS [Suspect]
     Dosage: 10 MG, 1 IN 1 DAY, ORAL
     Route: 048
     Dates: end: 20040303
  4. ATARAX [Suspect]
     Dosage: 50 MG, 1 IN 1 DAY, ORAL
     Route: 048
  5. RIVOTRIL [Suspect]
     Dosage: 2 MG, 1 IN 1 DAY, ORAL
     Route: 048
     Dates: start: 20040226, end: 20040302
  6. AMLODIPINE BESYLATE [Concomitant]
  7. COZAAR [Concomitant]
  8. PLAVIX [Concomitant]
  9. NEURONTIN [Concomitant]
  10. UMULINE (INSULIN HUMAN ZINCE SUSPENSION) [Concomitant]

REACTIONS (8)
  - BRADYARRHYTHMIA [None]
  - CREATININE RENAL CLEARANCE DECREASED [None]
  - DISORIENTATION [None]
  - DRUG INTERACTION [None]
  - MEDICATION ERROR [None]
  - NERVOUS SYSTEM DISORDER [None]
  - SELF-MEDICATION [None]
  - SOMNOLENCE [None]
